FAERS Safety Report 9858289 (Version 2)
Quarter: 2014Q1

REPORT INFORMATION
  Report Type: Spontaneous
  Country: IT (occurrence: IT)
  Receive Date: 20140131
  Receipt Date: 20140206
  Transmission Date: 20141002
  Serious: Yes (Hospitalization)
  Sender: FDA-Public Use
  Company Number: IT-TEVA-457002ISR

PATIENT
  Age: 55 Year
  Sex: Male

DRUGS (2)
  1. SERTRALINE [Suspect]
     Indication: AUTOPHOBIA
     Route: 048
     Dates: start: 20140110, end: 20140110
  2. RIVOTRIL - 0.5MG COMPRESSE - ROCHE S.P.A. [Suspect]
     Indication: AUTOPHOBIA
     Route: 048
     Dates: start: 20140110, end: 20140110

REACTIONS (4)
  - Bradykinesia [Recovering/Resolving]
  - Intentional self-injury [Recovering/Resolving]
  - Bradyphrenia [Recovering/Resolving]
  - Overdose [None]
